FAERS Safety Report 6311241-0 (Version None)
Quarter: 2009Q3

REPORT INFORMATION
  Report Type: 
  Country: None (occurrence: None)
  Receive Date: 20090817
  Receipt Date: 20090518
  Transmission Date: 20100115
  Serious: No
  Sender: FDA-Public Use
  Company Number: US-BAYER-200921176NA

PATIENT
  Age: 19 Year
  Sex: Female
  Weight: 54 kg

DRUGS (1)
  1. YASMIN [Suspect]
     Indication: MENSTRUATION IRREGULAR
     Route: 048
     Dates: start: 20080601, end: 20080601

REACTIONS (2)
  - NAUSEA [None]
  - NO ADVERSE EVENT [None]
